FAERS Safety Report 9239028 (Version 1)
Quarter: 2013Q2

REPORT INFORMATION
  Report Type: Spontaneous
  Country: FR (occurrence: FR)
  Receive Date: 20130418
  Receipt Date: 20130418
  Transmission Date: 20140414
  Serious: Yes (Hospitalization)
  Sender: FDA-Public Use
  Company Number: FR-ASTRAZENECA-2013SE23817

PATIENT
  Age: 19089 Day
  Sex: Male

DRUGS (7)
  1. INEXIUM [Suspect]
     Route: 048
     Dates: end: 20120618
  2. CELLCEPT [Suspect]
     Indication: LIVER TRANSPLANT
     Route: 048
     Dates: start: 20120417, end: 20120618
  3. TAZOCILLINE [Suspect]
     Indication: PROPHYLAXIS
     Route: 051
     Dates: start: 201206, end: 20120618
  4. URSOLVAN [Suspect]
     Route: 048
     Dates: end: 20120618
  5. NEORAL [Concomitant]
     Dates: start: 20120417
  6. AMLOR [Concomitant]
     Dosage: 10 MG EVERY MORNING MORE 5 MG AT 4:00 PM
  7. LASILIX [Concomitant]

REACTIONS (3)
  - Hepatic encephalopathy [Unknown]
  - Neutropenia [Recovered/Resolved]
  - Agranulocytosis [Recovered/Resolved]
